FAERS Safety Report 14812997 (Version 1)
Quarter: 2018Q2

REPORT INFORMATION
  Report Type: Spontaneous
  Country: FR (occurrence: FR)
  Receive Date: 20180426
  Receipt Date: 20180426
  Transmission Date: 20180711
  Serious: Yes (Other)
  Sender: FDA-Public Use
  Company Number: FR-MERCK KGAA-2046541

PATIENT
  Age: 34 Year
  Sex: Female

DRUGS (2)
  1. NOVOTHYROX [Suspect]
     Active Substance: LEVOTHYROXINE SODIUM
     Indication: HYPOTHYROIDISM
  2. NOVOTHYROX [Suspect]
     Active Substance: LEVOTHYROXINE SODIUM
     Dates: end: 2017

REACTIONS (22)
  - Fatigue [None]
  - Blood creatinine decreased [None]
  - Dizziness [None]
  - Negative thoughts [None]
  - Feeling abnormal [None]
  - Hyperventilation [Not Recovered/Not Resolved]
  - Suicidal ideation [Recovering/Resolving]
  - Bradycardia [Recovering/Resolving]
  - Anger [None]
  - Balance disorder [None]
  - Irritability [None]
  - Weight decreased [None]
  - Blood thyroid stimulating hormone decreased [None]
  - Blood thyroid stimulating hormone increased [None]
  - Agitation [Recovering/Resolving]
  - Inflammation [None]
  - Palpitations [None]
  - General physical health deterioration [None]
  - Depression [Recovering/Resolving]
  - Mood swings [None]
  - Asthenia [None]
  - Headache [Recovering/Resolving]

NARRATIVE: CASE EVENT DATE: 2017
